FAERS Safety Report 9731592 (Version 1)
Quarter: 2013Q4

REPORT INFORMATION
  Report Type: Spontaneous
  Country: JP (occurrence: JP)
  Receive Date: 20131203
  Receipt Date: 20131203
  Transmission Date: 20140711
  Serious: Yes (Hospitalization)
  Sender: FDA-Public Use
  Company Number: JP-MYLANLABS-2013S1026828

PATIENT
  Age: 65 Year
  Sex: Male

DRUGS (1)
  1. METHOTREXATE [Suspect]
     Indication: RHEUMATOID ARTHRITIS
     Route: 048

REACTIONS (5)
  - Interstitial lung disease [Recovering/Resolving]
  - Anaemia [Recovering/Resolving]
  - Shock [Recovering/Resolving]
  - Haematoma [Recovering/Resolving]
  - Aneurysm ruptured [Recovering/Resolving]
